FAERS Safety Report 7397576-1 (Version None)
Quarter: 2011Q2

REPORT INFORMATION
  Report Type: 
  Country: None (occurrence: None)
  Receive Date: 20110406
  Receipt Date: 20110331
  Transmission Date: 20111010
  Serious: Yes (Hospitalization)
  Sender: FDA-Public Use
  Company Number: IT-SANOFI-AVENTIS-2011SA019612

PATIENT
  Age: 56 Year
  Sex: Female

DRUGS (8)
  1. HYDROCHLOROTHIAZIDE/OLMESARTAN MEDOXOMIL [Concomitant]
     Route: 065
  2. HUMIRA [Suspect]
     Indication: RHEUMATOID ARTHRITIS
     Route: 058
     Dates: start: 20100913, end: 20110118
  3. LASIX [Concomitant]
     Route: 065
  4. PLAQUENIL [Suspect]
     Indication: RHEUMATOID ARTHRITIS
     Route: 048
     Dates: start: 20100913, end: 20110323
  5. METHOTREXATE [Suspect]
     Indication: RHEUMATOID ARTHRITIS
     Route: 030
     Dates: start: 20030101, end: 20110303
  6. BARNIDIPINE [Concomitant]
     Route: 065
  7. LOBIVON [Concomitant]
     Route: 065
  8. TRIASPORIN [Concomitant]
     Route: 065

REACTIONS (2)
  - ORAL CANDIDIASIS [None]
  - PNEUMONIA [None]
